FAERS Safety Report 8842853 (Version 1)
Quarter: 2012Q4

REPORT INFORMATION
  Report Type: 
  Country: US (occurrence: US)
  Receive Date: 20121016
  Receipt Date: 20121016
  Transmission Date: 20130627
  Serious: No
  Sender: FDA-Public Use
  Company Number: US-BAYER-2012-108226

PATIENT
  Age: 80 Year
  Sex: Female

DRUGS (1)
  1. CIPRO [Suspect]
     Dosage: 500 mg, BID
     Route: 048

REACTIONS (3)
  - Chest pain [None]
  - Vomiting [None]
  - Bowel movement irregularity [None]
